FAERS Safety Report 13729687 (Version 1)
Quarter: 2017Q3

REPORT INFORMATION
  Report Type: Spontaneous
  Country: GB (occurrence: GB)
  Receive Date: 20170707
  Receipt Date: 20170707
  Transmission Date: 20171127
  Serious: Yes (Hospitalization, Other)
  Sender: FDA-Public Use
  Company Number: GB-009507513-1706GBR010490

PATIENT
  Age: 22 Year
  Sex: Male
  Weight: 75 kg

DRUGS (4)
  1. TIMOLOL MALEATE. [Concomitant]
     Active Substance: TIMOLOL MALEATE
     Dosage: UNK
     Dates: start: 20170327
  2. MIRTAZAPINE. [Suspect]
     Active Substance: MIRTAZAPINE
     Indication: DEPRESSION
     Dosage: MAX. DOSE: 30MG. 15MG IS THE DOSE TAKEN FOR THE LONGEST
     Route: 048
     Dates: start: 20151119, end: 20170603
  3. LATANOPROST. [Concomitant]
     Active Substance: LATANOPROST
     Dosage: UNK
     Dates: start: 20170222
  4. PRED FORTE [Concomitant]
     Active Substance: PREDNISOLONE ACETATE
     Dosage: UNK
     Dates: start: 20170202

REACTIONS (7)
  - Condition aggravated [Unknown]
  - Iridocyclitis [Recovered/Resolved]
  - Withdrawal syndrome [Unknown]
  - Autoimmune uveitis [Recovered/Resolved]
  - Photophobia [Unknown]
  - Visual impairment [Unknown]
  - Eye pain [Unknown]

NARRATIVE: CASE EVENT DATE: 20170201
